FAERS Safety Report 9184341 (Version 3)
Quarter: 2013Q2

REPORT INFORMATION
  Report Type: Spontaneous
  Country: JP (occurrence: JP)
  Receive Date: 20130322
  Receipt Date: 20130429
  Transmission Date: 20140414
  Serious: Yes (Other)
  Sender: FDA-Public Use
  Company Number: JP-PFIZER INC-2013093361

PATIENT
  Age: 80 Year
  Sex: Female
  Weight: 42.4 kg

DRUGS (9)
  1. PREGABALIN [Suspect]
     Indication: NEURALGIA
     Dosage: 75 MG, 2X/DAY
     Route: 048
     Dates: start: 20130308, end: 20130312
  2. BROTIZOLAM [Concomitant]
     Indication: INSOMNIA
     Dosage: 0.25 MG, 1X/DAY
     Route: 048
     Dates: end: 20130312
  3. MICARDIS [Concomitant]
  4. BAYASPIRIN [Concomitant]
  5. LANSOPRAZOLE [Concomitant]
  6. VESICARE [Concomitant]
  7. SEIBULE [Concomitant]
  8. ATORVASTATIN [Concomitant]
  9. METGLUCO [Concomitant]

REACTIONS (3)
  - Fall [Recovered/Resolved]
  - Dizziness [Recovered/Resolved]
  - Asthenia [Recovered/Resolved]
